FAERS Safety Report 6523878-4 (Version None)
Quarter: 2009Q4

REPORT INFORMATION
  Report Type: 
  Country: None (occurrence: None)
  Receive Date: 20091230
  Receipt Date: 20091230
  Transmission Date: 20100525
  Serious: Yes (Hospitalization)
  Sender: FDA-Public Use
  Company Number: None

PATIENT
  Age: 76 Year
  Sex: Male

DRUGS (1)
  1. LIDOCAINE AND EPINEPHRINE [Suspect]
     Indication: SURGERY
     Dosage: 50 ML PRN TOP
     Route: 061
     Dates: start: 20091229, end: 20091229

REACTIONS (3)
  - INADEQUATE ANALGESIA [None]
  - MUSCLE TWITCHING [None]
  - PRODUCT QUALITY ISSUE [None]
